FAERS Safety Report 6060121-7 (Version None)
Quarter: 2009Q1

REPORT INFORMATION
  Report Type: 
  Country: None (occurrence: None)
  Receive Date: 20090128
  Receipt Date: 20090115
  Transmission Date: 20090719
  Serious: Yes (Hospitalization, Other)
  Sender: FDA-Public Use
  Company Number: POMP-1000341

PATIENT
  Age: 73 Year
  Sex: Female

DRUGS (6)
  1. MYOZYME [Suspect]
     Indication: GLYCOGEN STORAGE DISEASE TYPE II
     Dosage: INTRAVENOUS
     Route: 042
     Dates: start: 20080128
  2. MYOZYME [Suspect]
  3. MYOZYME [Suspect]
  4. TAMSULOSIN HCL [Concomitant]
  5. AUGMENTIN '125' [Concomitant]
  6. ANTIBIOTICS [Concomitant]

REACTIONS (8)
  - ACUTE RESPIRATORY DISTRESS SYNDROME [None]
  - ACUTE RESPIRATORY FAILURE [None]
  - BRADYCARDIA [None]
  - BRONCHITIS [None]
  - DISEASE COMPLICATION [None]
  - DYSPHAGIA [None]
  - HEART SOUNDS ABNORMAL [None]
  - HYPOTENSION [None]
